FAERS Safety Report 6818112-1 (Version None)
Quarter: 2010Q3

REPORT INFORMATION
  Report Type: 
  Country: None (occurrence: None)
  Receive Date: 20100706
  Receipt Date: 20100622
  Transmission Date: 20110219
  Serious: Yes (Other)
  Sender: FDA-Public Use
  Company Number: JP-PFIZER INC-2010062881

PATIENT
  Age: 86 Year
  Sex: Female
  Weight: 38 kg

DRUGS (10)
  1. CELECOX [Suspect]
     Indication: OSTEOARTHRITIS
     Dosage: 100 MG, 2X/DAY
     Route: 048
     Dates: start: 20100201, end: 20100408
  2. ASPIRIN [Concomitant]
     Dosage: UNK
     Dates: end: 20100405
  3. AMLODIN [Concomitant]
     Dosage: UNK
     Dates: end: 20100405
  4. LASIX [Concomitant]
     Dosage: UNK
     Dates: end: 20100405
  5. ALDACTONE [Concomitant]
     Dosage: UNK
     Dates: end: 20100405
  6. FERROMIA [Concomitant]
     Dosage: UNK
     Dates: end: 20100405
  7. TAKEPRON [Concomitant]
     Dosage: UNK
     Dates: end: 20100405
  8. ACTONEL [Concomitant]
     Dosage: UNK
     Dates: end: 20100405
  9. PLAVIX [Concomitant]
     Dosage: UNK
     Dates: start: 20100320, end: 20100409
  10. ALOSITOL [Concomitant]
     Dosage: UNK
     Dates: start: 20100403, end: 20100409

REACTIONS (1)
  - ALTERED STATE OF CONSCIOUSNESS [None]
